FAERS Safety Report 6151653-1 (Version None)
Quarter: 2009Q2

REPORT INFORMATION
  Report Type: 
  Country: None (occurrence: None)
  Receive Date: 20090410
  Receipt Date: 20090330
  Transmission Date: 20091009
  Serious: Yes (Other)
  Sender: FDA-Public Use
  Company Number: US-PFIZER INC-2008056750

PATIENT
  Sex: Female
  Weight: 58.18 kg

DRUGS (6)
  1. LYRICA [Suspect]
     Indication: NERVE INJURY
     Dosage: 100 MG, 3X/DAY
     Dates: start: 20060101
  2. ALL OTHER THERAPEUTIC PRODUCTS [Concomitant]
  3. ENDOCET [Concomitant]
  4. TRAZODONE HCL [Concomitant]
  5. DIAZEPAM [Concomitant]
     Dosage: UNK
  6. ACETAMINOPHEN AND HYDROCODONE BITARTRATE [Concomitant]
     Dosage: UNK

REACTIONS (9)
  - EYE SWELLING [None]
  - FATIGUE [None]
  - FLUID RETENTION [None]
  - JOINT SWELLING [None]
  - OEDEMA PERIPHERAL [None]
  - PAIN [None]
  - SWELLING [None]
  - SWELLING FACE [None]
  - WEIGHT INCREASED [None]
